FAERS Safety Report 7964268-7 (Version None)
Quarter: 2011Q4

REPORT INFORMATION
  Report Type: 
  Country: None (occurrence: None)
  Receive Date: 20111208
  Receipt Date: 20111128
  Transmission Date: 20120403
  Serious: Yes (Hospitalization)
  Sender: FDA-Public Use
  Company Number: US-GENZYME-THYM-1001560

PATIENT
  Sex: Male
  Weight: 103 kg

DRUGS (31)
  1. MYCOPHENOLATE MOFETIL [Concomitant]
     Indication: IMMUNOSUPPRESSION
     Dosage: 1000 MG, BID
     Dates: start: 20100611, end: 20100618
  2. OXYCODONE HCL [Concomitant]
     Indication: PAIN
     Dosage: 2.5 MG, Q4HR
     Dates: start: 20100616, end: 20100623
  3. ONDANSETRON HYDROCHLORIDE [Concomitant]
     Indication: VOMITING
  4. VALGANCICLOVIR HYDROCHLORIDE [Concomitant]
     Indication: CYTOMEGALOVIRUS INFECTION
     Dosage: 900 MG, QD
     Dates: start: 20100611, end: 20100623
  5. ONDANSETRON HYDROCHLORIDE [Concomitant]
     Indication: NAUSEA
     Dosage: 4 MG, QID
     Dates: start: 20100614, end: 20100617
  6. THYMOGLOBULIN [Suspect]
     Indication: PROPHYLAXIS AGAINST TRANSPLANT REJECTION
     Dosage: 125 MG, UNK
     Route: 042
     Dates: start: 20100610, end: 20100610
  7. THYMOGLOBULIN [Suspect]
     Dosage: 125 MG, UNK
     Route: 042
     Dates: start: 20100612, end: 20100612
  8. HYDROCHLOROTHIAZIDE [Concomitant]
     Indication: OEDEMA
     Dosage: 25 MG, ONCE
     Dates: start: 20100617, end: 20100617
  9. MAGNESIUM PHOSPHATE [Concomitant]
     Indication: MAGNESIUM DEFICIENCY
     Dosage: 64 MG, TID
     Dates: start: 20100616, end: 20100623
  10. CITALOPRAM HYDROCHLORIDE [Concomitant]
     Indication: DEPRESSION
     Dosage: 10 MG, QD
     Dates: start: 20100610, end: 20100623
  11. LANSOPRAZOLE [Concomitant]
     Indication: GASTROOESOPHAGEAL REFLUX DISEASE
     Dosage: 30 MG, QD
     Dates: start: 20100610, end: 20100623
  12. METOPROLOL TARTRATE [Concomitant]
     Indication: HYPERTENSION
     Dosage: 25 MG, BID
     Dates: start: 20100611, end: 20100618
  13. THYMOGLOBULIN [Suspect]
     Dosage: 125 MG, UNK
     Route: 042
     Dates: start: 20100616, end: 20100616
  14. ACETAMINOPHEN [Concomitant]
     Indication: PYREXIA
     Dosage: 625 MG, QID
     Dates: start: 20100616, end: 20100623
  15. AMLODIPINE BESYLATE [Concomitant]
     Indication: HYPERTENSION
     Dosage: 5 MG, QD
     Dates: start: 20100616, end: 20100623
  16. DIPHENHYDRAMINE HCL [Concomitant]
     Indication: PREMEDICATION
     Dosage: 50 MG, ONCE
     Dates: start: 20100616, end: 20100616
  17. POTASSIUM CHLORIDE [Concomitant]
     Indication: MINERAL SUPPLEMENTATION
     Dosage: 40 MEQ, TID
     Dates: start: 20100614, end: 20100614
  18. POTASSIUM CHLORIDE [Concomitant]
     Dosage: 40 MEQ, QD
     Dates: start: 20100614, end: 20100617
  19. PREDNISONE TAB [Concomitant]
     Indication: IMMUNOSUPPRESSION
     Dosage: 20 MG, QD
     Dates: start: 20100616, end: 20100623
  20. ALPRAZOLAM [Concomitant]
     Indication: ANXIETY
     Dosage: .25 MG, QID
     Dates: start: 20100614, end: 20100623
  21. CLONIDINE HYDROCHLORIDE [Concomitant]
     Indication: BLOOD PRESSURE SYSTOLIC
     Dosage: .1 MG, Q1HR
     Dates: start: 20100610, end: 20100623
  22. MAGNESIUM SULFATE [Concomitant]
     Indication: MINERAL SUPPLEMENTATION
     Dosage: 2 G, QD
     Dates: start: 20100617, end: 20100617
  23. CYCLOBENZAPRINE HCL [Concomitant]
     Indication: MUSCLE SPASMS
     Dosage: 10 MG, QDX3
     Dates: start: 20100616, end: 20100623
  24. THYMOGLOBULIN [Suspect]
     Dosage: 125 MG, UNK
     Route: 042
     Dates: start: 20100614, end: 20100614
  25. BACTRIM [Concomitant]
     Indication: ANTI-INFECTIVE THERAPY
     Dosage: 1 DF, UNK
     Route: 048
     Dates: start: 20100614, end: 20100623
  26. HYDROMORPHONE HCL [Concomitant]
     Indication: PAIN
     Dosage: 1 MG, QID
     Dates: start: 20100614, end: 20100617
  27. ACETAMINOPHEN [Concomitant]
     Indication: PAIN
  28. INSULIN [Concomitant]
     Indication: HYPERGLYCAEMIA
     Dosage: 1 U, UNK
     Route: 058
     Dates: start: 20100615, end: 20100617
  29. LEVOTHYROXINE SODIUM [Concomitant]
     Indication: HYPOTHYROIDISM
     Dosage: 25 MCG, QD
     Dates: start: 20100616, end: 20100623
  30. TACROLIMUS [Concomitant]
     Indication: IMMUNOSUPPRESSION
     Dosage: 3 MG, BID
     Dates: start: 20100616, end: 20100621
  31. HYDRALAZINE HYDROCHLORIDE [Concomitant]
     Indication: HYPERTENSION
     Dosage: 10 MG, QID
     Dates: start: 20100614, end: 20100623

REACTIONS (12)
  - OEDEMA PERIPHERAL [None]
  - HEPATITIS C RNA INCREASED [None]
  - OXYGEN SATURATION DECREASED [None]
  - POLYCYTHAEMIA [None]
  - HYPERGLYCAEMIA [None]
  - HYPOKALAEMIA [None]
  - HEPATIC ENZYME INCREASED [None]
  - PYREXIA [None]
  - TACHYCARDIA [None]
  - WHITE BLOOD CELL COUNT INCREASED [None]
  - DEHYDRATION [None]
  - DIARRHOEA [None]
